FAERS Safety Report 9716940 (Version 1)
Quarter: 2013Q4

REPORT INFORMATION
  Report Type: Spontaneous
  Country: US (occurrence: US)
  Receive Date: 20131127
  Receipt Date: 20131127
  Transmission Date: 20140711
  Serious: No
  Sender: FDA-Public Use
  Company Number: US-GILEAD-2009-0019980

PATIENT
  Sex: Female
  Weight: 117.93 kg

DRUGS (10)
  1. LETAIRIS [Suspect]
     Indication: PULMONARY ARTERIAL HYPERTENSION
     Route: 048
     Dates: start: 20081110
  2. LASIX [Concomitant]
  3. TOPROL [Concomitant]
  4. MOTRIN [Concomitant]
  5. ULTRACET [Concomitant]
  6. NEURONTIN [Concomitant]
  7. CLARITIN [Concomitant]
  8. IMITREX [Concomitant]
  9. KLOR-CON [Concomitant]
  10. TESSALON [Concomitant]

REACTIONS (2)
  - Nasal congestion [Unknown]
  - Upper respiratory tract congestion [Unknown]
